FAERS Safety Report 6676780-1 (Version None)
Quarter: 2010Q2

REPORT INFORMATION
  Report Type: 
  Country: None (occurrence: None)
  Receive Date: 20100409
  Receipt Date: 20100409
  Transmission Date: 20101027
  Serious: No
  Sender: FDA-Public Use
  Company Number: None

PATIENT
  Sex: Female
  Weight: 46.2669 kg

DRUGS (1)
  1. LEVAQUIN [Suspect]
     Indication: SINUSITIS
     Dosage: ONE TABLET ONE TIME
     Dates: start: 20100312

REACTIONS (10)
  - ABDOMINAL DISCOMFORT [None]
  - BALANCE DISORDER [None]
  - BLISTER [None]
  - DECREASED APPETITE [None]
  - DIZZINESS [None]
  - INSOMNIA [None]
  - LIP BLISTER [None]
  - MEMORY IMPAIRMENT [None]
  - PARAESTHESIA [None]
  - VOMITING [None]
